FAERS Safety Report 17438849 (Version 1)
Quarter: 2020Q1

REPORT INFORMATION
  Report Type: Spontaneous
  Country: US (occurrence: US)
  Receive Date: 20200205
  Receipt Date: 20200205
  Transmission Date: 20200409
  Serious: No
  Sender: FDA-Public Use
  Company Number: None

PATIENT
  Age: 72 Year
  Sex: Male

DRUGS (1)
  1. IMATINIB MES TAB 400MG* [Suspect]
     Active Substance: IMATINIB
     Indication: GASTROINTESTINAL STROMAL TUMOUR
     Route: 048
     Dates: start: 201807, end: 20200205

REACTIONS (2)
  - Neoplasm progression [None]
  - Drug ineffective [None]

NARRATIVE: CASE EVENT DATE: 20200205
